FAERS Safety Report 7526094-2 (Version None)
Quarter: 2011Q2

REPORT INFORMATION
  Report Type: 
  Country: None (occurrence: None)
  Receive Date: 20110606
  Receipt Date: 20110531
  Transmission Date: 20111010
  Serious: Yes (Hospitalization)
  Sender: FDA-Public Use
  Company Number: US-MERCK-1104USA03481

PATIENT
  Age: 56 Year
  Sex: Male

DRUGS (4)
  1. CATAPRES [Concomitant]
     Indication: HYPERTENSION
     Route: 065
     Dates: start: 19890101
  2. [THERAPY UNSPECIFIED] [Concomitant]
     Route: 065
     Dates: start: 19890101
  3. FOSAMAX [Suspect]
     Indication: OSTEOPOROSIS
     Route: 048
     Dates: start: 20060501, end: 20091201
  4. NOVOLIN 70/30 [Concomitant]
     Indication: DIABETES MELLITUS
     Route: 065

REACTIONS (1)
  - FEMUR FRACTURE [None]
